FAERS Safety Report 17976940 (Version 1)
Quarter: 2020Q3

REPORT INFORMATION
  Report Type: Spontaneous
  Country: US (occurrence: US)
  Receive Date: 20200702
  Receipt Date: 20200702
  Transmission Date: 20201103
  Serious: Yes (Other)
  Sender: FDA-Public Use
  Company Number: US-ASTRAZENECA-2020SE81924

PATIENT
  Sex: Female
  Weight: 53.5 kg

DRUGS (8)
  1. LOSARTAN. [Interacting]
     Active Substance: LOSARTAN
     Indication: BLOOD PRESSURE ABNORMAL
     Route: 065
  2. LYNPARZA [Suspect]
     Active Substance: OLAPARIB
     Indication: OVARIAN CANCER
     Route: 048
     Dates: start: 20200229
  3. POTASSIUM [Concomitant]
     Active Substance: POTASSIUM
     Indication: BLOOD PRESSURE ABNORMAL
  4. AVASTIN [Concomitant]
     Active Substance: BEVACIZUMAB
     Dates: start: 201912
  5. ETOPOSIDE. [Concomitant]
     Active Substance: ETOPOSIDE
     Route: 048
  6. LYNPARZA [Interacting]
     Active Substance: OLAPARIB
     Indication: OVARIAN CANCER
     Route: 048
  7. TOPOTECAN [Concomitant]
     Active Substance: TOPOTECAN HYDROCHLORIDE
  8. LYNPARZA [Interacting]
     Active Substance: OLAPARIB
     Indication: OVARIAN CANCER
     Route: 048

REACTIONS (15)
  - Feeling abnormal [Unknown]
  - Fatigue [Unknown]
  - Therapeutic product effect decreased [Unknown]
  - Underweight [Unknown]
  - Illness [Unknown]
  - Drug interaction [Unknown]
  - Red blood cell count decreased [Unknown]
  - Product physical issue [Unknown]
  - Suspected COVID-19 [Unknown]
  - Asthenia [Unknown]
  - Eating disorder [Unknown]
  - Feeling hot [Unknown]
  - Blood sodium decreased [Unknown]
  - Tooth disorder [Unknown]
  - Vomiting [Not Recovered/Not Resolved]
